FAERS Safety Report 12666325 (Version 1)
Quarter: 2016Q3

REPORT INFORMATION
  Report Type: Spontaneous
  Country: RO (occurrence: RO)
  Receive Date: 20160818
  Receipt Date: 20160818
  Transmission Date: 20161109
  Serious: Yes (Other)
  Sender: FDA-Public Use
  Company Number: RO-AMGEN-ROUSP2016102837

PATIENT
  Age: 60 Year
  Sex: Female

DRUGS (2)
  1. ENBREL [Suspect]
     Active Substance: ETANERCEPT
     Indication: PSORIASIS
     Dosage: 50 MG, WEEKLY
     Route: 058
     Dates: start: 201308, end: 201606
  2. ENBREL [Suspect]
     Active Substance: ETANERCEPT
     Dosage: 50 MG,EVERY 10 DAYS
     Route: 058

REACTIONS (12)
  - Pulmonary fibrosis [Recovering/Resolving]
  - Pulmonary mass [Recovering/Resolving]
  - Asthma [Recovering/Resolving]
  - Pruritus [Recovered/Resolved]
  - Synovial cyst [Recovering/Resolving]
  - Dizziness [Recovering/Resolving]
  - Blister [Recovered/Resolved]
  - Rash [Recovered/Resolved]
  - Pain [Recovered/Resolved]
  - Injection site bruising [Recovered/Resolved]
  - Headache [Recovering/Resolving]
  - Injection site swelling [Recovered/Resolved]

NARRATIVE: CASE EVENT DATE: 201603
